FAERS Safety Report 9203154 (Version 1)
Quarter: 2013Q1

REPORT INFORMATION
  Report Type: Spontaneous
  Country: IT (occurrence: None)
  Receive Date: 20130328
  Receipt Date: 20130328
  Transmission Date: 20140127
  Serious: Yes (Hospitalization)
  Sender: FDA-Public Use
  Company Number: 2013-05387

PATIENT
  Sex: Female

DRUGS (2)
  1. OLANZAPINHE [Suspect]
     Indication: PRODUCT USED FOR UNKNOWN INDICATION
  2. IBUPROFEN (UNKNOWN) (IBUPROFEN) UNK, UNKUNK [Suspect]
     Indication: PRODUCT USED FOR UNKNOWN INDICATION

REACTIONS (2)
  - Toxicity to various agents [None]
  - Sopor [None]
